FAERS Safety Report 26090093 (Version 1)
Quarter: 2025Q4

REPORT INFORMATION
  Report Type: Spontaneous
  Country: CN (occurrence: CN)
  Receive Date: 20251126
  Receipt Date: 20251126
  Transmission Date: 20260118
  Serious: Yes (Other)
  Sender: ALEXION PHARMACEUTICALS
  Company Number: CN-ASTRAZENECA-202511CHN017841CN

PATIENT
  Age: 59 Year
  Sex: Male
  Weight: 58 kg

DRUGS (1)
  1. DAPAGLIFLOZIN [Suspect]
     Active Substance: DAPAGLIFLOZIN
     Indication: Cardiac failure
     Dosage: 10 MILLIGRAM, QD
     Dates: start: 20251111, end: 20251111

REACTIONS (4)
  - Coma [Recovering/Resolving]
  - Hypoglycaemia [Recovering/Resolving]
  - Blood pressure increased [Unknown]
  - Pupillary light reflex tests abnormal [Unknown]

NARRATIVE: CASE EVENT DATE: 20251111
